FAERS Safety Report 5317760-8 (Version None)
Quarter: 2007Q2

REPORT INFORMATION
  Report Type: 
  Country: None (occurrence: None)
  Receive Date: 20070507
  Receipt Date: 20070427
  Transmission Date: 20071010
  Serious: Yes (Hospitalization)
  Sender: FDA-Public Use
  Company Number: SE-ASTRAZENECA-2007SE02404

PATIENT
  Age: 62 Year
  Sex: Female

DRUGS (2)
  1. NAROPIN [Suspect]
     Indication: LOCAL ANAESTHESIA
     Dosage: EXTRA TECAL, DOSAGE REGIMEN: 5 ML
     Route: 008
     Dates: start: 20061212, end: 20061214
  2. SUFENTANIL CITRATE [Concomitant]
     Dates: start: 20061212, end: 20061213

REACTIONS (2)
  - PARAPARESIS [None]
  - SENSORY DISTURBANCE [None]
